FAERS Safety Report 14080725 (Version 1)
Quarter: 2017Q4

REPORT INFORMATION
  Report Type: Spontaneous
  Country: US (occurrence: US)
  Receive Date: 20171012
  Receipt Date: 20171012
  Transmission Date: 20180321
  Serious: Yes (Other)
  Sender: FDA-Public Use
  Company Number: US-BEH-2017084200

PATIENT
  Sex: Female
  Weight: 61.22 kg

DRUGS (27)
  1. LIDOCAINE/PRILOCAINE [Concomitant]
     Active Substance: LIDOCAINE\PRILOCAINE
  2. HIZENTRA [Suspect]
     Active Substance: HUMAN IMMUNOGLOBULIN G
     Indication: IMMUNODEFICIENCY COMMON VARIABLE
     Dosage: 8 G, QW
     Route: 058
     Dates: start: 20101104
  3. DIPHENHYDRAMINE. [Concomitant]
     Active Substance: DIPHENHYDRAMINE
  4. PANTOPRAZOLE [Concomitant]
     Active Substance: PANTOPRAZOLE
  5. SUCRALFATE. [Concomitant]
     Active Substance: SUCRALFATE
  6. POTASSIUM [Concomitant]
     Active Substance: POTASSIUM
  7. ALBUTEROL                          /00139501/ [Concomitant]
     Active Substance: ALBUTEROL
  8. PROLIA [Concomitant]
     Active Substance: DENOSUMAB
  9. DILTIAZEM. [Concomitant]
     Active Substance: DILTIAZEM
  10. PULMICORT TURBUHALER [Concomitant]
     Active Substance: BUDESONIDE
  11. EPINEPHRINE. [Concomitant]
     Active Substance: EPINEPHRINE
  12. CALCIUM [Concomitant]
     Active Substance: CALCIUM
  13. ALENDRONATE [Concomitant]
     Active Substance: ALENDRONATE SODIUM
  14. ISOSORBIDE MONONITE [Concomitant]
  15. COENZYME Q10 [Concomitant]
     Active Substance: UBIDECARENONE
  16. VENLAFAXINE [Concomitant]
     Active Substance: VENLAFAXINE HYDROCHLORIDE
  17. ECHINACEA                          /01323501/ [Concomitant]
     Active Substance: ECHINACEA PURPUREA
  18. VITAMIN D                          /00107901/ [Concomitant]
     Active Substance: ERGOCALCIFEROL
  19. MULTIVITAMIN                       /00097801/ [Concomitant]
     Active Substance: VITAMINS
  20. LOSARTAN AND HYDROCHLOROTHIAZIDE [Concomitant]
     Active Substance: HYDROCHLOROTHIAZIDE\LOSARTAN POTASSIUM
  21. GABAPENTIN. [Concomitant]
     Active Substance: GABAPENTIN
  22. AMITRIPTYLINE [Concomitant]
     Active Substance: AMITRIPTYLINE
  23. TERAZOSIN [Concomitant]
     Active Substance: TERAZOSIN\TERAZOSIN HYDROCHLORIDE
  24. HIZENTRA [Suspect]
     Active Substance: HUMAN IMMUNOGLOBULIN G
     Dosage: UNK
     Route: 058
  25. OXYGEN. [Concomitant]
     Active Substance: OXYGEN
  26. IPRATROPIUM [Concomitant]
     Active Substance: IPRATROPIUM
  27. LORATADINE. [Concomitant]
     Active Substance: LORATADINE

REACTIONS (1)
  - Thrombosis [Unknown]
